FAERS Safety Report 5372527-X (Version None)
Quarter: 2007Q2

REPORT INFORMATION
  Report Type: 
  Country: None (occurrence: None)
  Receive Date: 20070627
  Receipt Date: 20070618
  Transmission Date: 20071010
  Serious: Yes (Other)
  Sender: FDA-Public Use
  Company Number: CA-ABBOTT-07P-028-0371803-00

PATIENT
  Sex: Female

DRUGS (12)
  1. LIPIDIL EZ 145 MG [Suspect]
     Indication: HYPERLIPIDAEMIA
     Route: 048
     Dates: start: 20070512, end: 20070526
  2. NOVOLIN GE 30/70 INSULIN [Interacting]
     Indication: DIABETES MELLITUS NON-INSULIN-DEPENDENT
     Route: 058
  3. PMS-FERROUS SULFATE [Concomitant]
     Indication: ANAEMIA
     Route: 048
     Dates: start: 20070414
  4. ESTROGENS CONJUGATED [Concomitant]
     Indication: HORMONE REPLACEMENT THERAPY
     Route: 048
  5. MEDROXYPROGESTERONE ACETATE [Concomitant]
     Indication: HORMONE REPLACEMENT THERAPY
     Route: 048
  6. RISPERIDONE [Concomitant]
     Indication: FIBROMYALGIA
     Route: 048
  7. ERGOCALCIFEROL [Concomitant]
     Indication: VITAMIN SUPPLEMENTATION
     Route: 048
  8. DIDRONEL PMO [Concomitant]
     Indication: OSTEOPOROSIS
     Route: 048
  9. PHENYTOIN SODIUM [Concomitant]
     Indication: FIBROMYALGIA
     Route: 048
  10. LEVOTHYROXINE SODIUM [Concomitant]
     Indication: HYPOTHYROIDISM
     Route: 048
  11. QUININE SULFATE [Concomitant]
     Indication: FIBROMYALGIA
     Route: 048
  12. OMEGA-3 TRIGLYCERIDES [Concomitant]
     Indication: CARDIOVASCULAR DISORDER
     Route: 048
     Dates: start: 20070414, end: 20070526

REACTIONS (3)
  - BLOOD GLUCOSE FLUCTUATION [None]
  - DRUG INTERACTION [None]
  - HYPOGLYCAEMIA [None]
